FAERS Safety Report 7937148 (Version 2)
Quarter: 2014Q1

REPORT INFORMATION
  Report Type: Report from Study
  Country: US (occurrence: US)
  Receive Date: 20110509
  Receipt Date: 20140325
  Transmission Date: 20141002
  Serious: Yes (Other)
  Sender: FDA-Public Use
  Company Number: US-ALEXION-A201100314

PATIENT
  Age: 32 Year
  Sex: Male

DRUGS (4)
  1. SOLIRIS [Suspect]
     Indication: PAROXYSMAL NOCTURNAL HAEMOGLOBINURIA
     Dosage: 600 MG, QW
     Route: 042
     Dates: start: 2009
  2. TESTOSTERONE [Concomitant]
     Indication: ANDROGEN DEFICIENCY
     Dosage: 1 MG 2XWEEK
  3. XANAX [Concomitant]
     Indication: ANXIETY
     Dosage: 1 MG PRN
     Route: 048
  4. METHADONE [Concomitant]
     Indication: PAIN
     Dosage: 10 MG BID
     Route: 048

REACTIONS (3)
  - Depression [Unknown]
  - Mental disorder [Unknown]
  - Respiratory tract infection [Recovered/Resolved]
